FAERS Safety Report 5406711-3 (Version None)
Quarter: 2007Q3

REPORT INFORMATION
  Report Type: 
  Country: None (occurrence: None)
  Receive Date: 20070803
  Receipt Date: 20070803
  Transmission Date: 20080115
  Serious: Yes (Hospitalization)
  Sender: FDA-Public Use
  Company Number: None

PATIENT
  Sex: Female

DRUGS (2)
  1. AVONEX [Suspect]
     Indication: MULTIPLE SCLEROSIS
     Dosage: 30 MCG Q WK IM
     Route: 030
     Dates: start: 20070602
  2. VALTREX [Suspect]
     Indication: ORAL HERPES
     Dosage: 1 GRAM TWICE A DAY PO 3 TABLETS TAKEN
     Route: 048

REACTIONS (3)
  - AMNESIA [None]
  - CONFUSIONAL STATE [None]
  - SOMNOLENCE [None]
